FAERS Safety Report 4645837-9 (Version None)
Quarter: 2005Q2

REPORT INFORMATION
  Report Type: 
  Country: None (occurrence: None)
  Receive Date: 20050425
  Receipt Date: 20050411
  Transmission Date: 20051028
  Serious: Yes (Hospitalization)
  Sender: FDA-Public Use
  Company Number: S05-USA-01904-01

PATIENT
  Age: 77 Year
  Sex: Female

DRUGS (14)
  1. NAMENDA [Suspect]
     Indication: DEMENTIA
     Dosage: 15 MG QD PO
     Route: 048
     Dates: start: 20050327, end: 20050402
  2. NAMENDA [Suspect]
     Indication: DEMENTIA
     Dosage: 5 MG QD PO
     Route: 048
     Dates: start: 20050313, end: 20050319
  3. NAMENDA [Suspect]
     Indication: DEMENTIA
     Dosage: 5 MG BID PO
     Route: 048
     Dates: start: 20050320, end: 20050326
  4. NAMENDA [Suspect]
     Indication: DEMENTIA
     Dosage: 10 MG BID PO
     Route: 048
     Dates: start: 20050403, end: 20050405
  5. PREDNISONE [Concomitant]
  6. PREVACID [Concomitant]
  7. PLAQUENIL [Concomitant]
  8. PLAVIX [Concomitant]
  9. THEO-DUR [Concomitant]
  10. MIACALCIN [Concomitant]
  11. ADVIR [Concomitant]
  12. NEBULIZER [Concomitant]
  13. PULMOCARE [Concomitant]
  14. DESYREL (TRAZADONE HYDROCHLORIDE) [Concomitant]

REACTIONS (4)
  - BLOOD PRESSURE DECREASED [None]
  - CONFUSIONAL STATE [None]
  - HALLUCINATION, VISUAL [None]
  - INFLUENZA [None]
